FAERS Safety Report 8479472-1 (Version None)
Quarter: 2012Q2

REPORT INFORMATION
  Report Type: 
  Country: None (occurrence: None)
  Receive Date: 20120629
  Receipt Date: 20120626
  Transmission Date: 20120825
  Serious: Yes (Other)
  Sender: FDA-Public Use
  Company Number: DE-PFIZER INC-2012154126

PATIENT
  Sex: Female

DRUGS (2)
  1. AMLODIPINE [Interacting]
     Indication: HYPERTENSION
     Dosage: 10 MG, UNK
  2. ALPRAZOLAM [Suspect]
     Dosage: 1 OR 1.5 MG, DAILY

REACTIONS (3)
  - SYNCOPE [None]
  - DRUG INTERACTION [None]
  - SKELETAL INJURY [None]
